FAERS Safety Report 12717320 (Version 1)
Quarter: 2016Q3

REPORT INFORMATION
  Report Type: Spontaneous
  Country: BR (occurrence: BR)
  Receive Date: 20160906
  Receipt Date: 20160906
  Transmission Date: 20161109
  Serious: Yes (Other)
  Sender: FDA-Public Use
  Company Number: BR-GLAXOSMITHKLINE-BR2016GSK124955

PATIENT
  Sex: Male
  Weight: 64 kg

DRUGS (1)
  1. COMBODART [Suspect]
     Active Substance: DUTASTERIDE\TAMSULOSIN
     Indication: PROSTATOMEGALY
     Dosage: 1 DF, QD (CAPSULE)
     Route: 048

REACTIONS (2)
  - Urinary retention [Recovered/Resolved]
  - Inappropriate schedule of drug administration [Unknown]
